FAERS Safety Report 22109933 (Version 1)
Quarter: 2023Q1

REPORT INFORMATION
  Report Type: Spontaneous
  Country: US (occurrence: None)
  Receive Date: 20230317
  Receipt Date: 20230317
  Transmission Date: 20230418
  Serious: No
  Sender: FDA-Public Use
  Company Number: None

PATIENT
  Age: 80 Year
  Sex: Female
  Weight: 69.4 kg

DRUGS (11)
  1. CAPECITABINE [Suspect]
     Active Substance: CAPECITABINE
     Indication: Colon cancer
     Dosage: 2000MG TWICE DAILY ORAL
     Route: 048
  2. ACETAMINOPHEN [Concomitant]
  3. ALBUTEROL [Concomitant]
  4. FEXOFENADINE [Concomitant]
  5. LOPERAMIDE [Concomitant]
  6. LORATADINE [Concomitant]
  7. LOSARTAN [Concomitant]
  8. METFORMIN [Concomitant]
  9. PROCHLORPERAZINE [Concomitant]
  10. PROCTOSOL [Concomitant]
  11. TYLENOL [Concomitant]

REACTIONS (2)
  - Palmar-plantar erythrodysaesthesia syndrome [None]
  - Skin discolouration [None]
